FAERS Safety Report 11248146 (Version 1)
Quarter: 2015Q2

REPORT INFORMATION
  Report Type: Report from Study
  Country: US (occurrence: None)
  Receive Date: 20150617
  Receipt Date: 20150617
  Transmission Date: 20150821
  Serious: No
  Sender: FDA-Public Use
  Company Number: 2014TASUS000556

PATIENT
  Age: 55 Year
  Sex: Male
  Weight: 121.1 kg

DRUGS (1)
  1. HETLIOZ [Suspect]
     Active Substance: TASIMELTEON
     Indication: CIRCADIAN RHYTHM SLEEP DISORDER
     Route: 048
     Dates: start: 201410, end: 20141027

REACTIONS (2)
  - Muscle spasms [None]
  - Somnolence [None]

NARRATIVE: CASE EVENT DATE: 201410
